FAERS Safety Report 10611930 (Version 2)
Quarter: 2014Q4

REPORT INFORMATION
  Report Type: Spontaneous
  Country: US (occurrence: US)
  Receive Date: 20141126
  Receipt Date: 20141218
  Transmission Date: 20150529
  Serious: Yes (Death, Life-Threatening, Hospitalization, Other)
  Sender: FDA-Public Use
  Company Number: US-009507513-1411USA012603

PATIENT
  Sex: Male
  Weight: 72.56 kg

DRUGS (2)
  1. JANUVIA [Suspect]
     Active Substance: SITAGLIPTIN PHOSPHATE
     Dosage: 100 MG, QD
     Route: 048
     Dates: start: 20120327, end: 20120625
  2. JANUVIA [Suspect]
     Active Substance: SITAGLIPTIN PHOSPHATE
     Indication: TYPE 2 DIABETES MELLITUS
     Dosage: 100 MG, QD
     Route: 048
     Dates: start: 20080604, end: 20090620

REACTIONS (17)
  - Colon adenoma [Unknown]
  - Nausea [Unknown]
  - Vomiting [Unknown]
  - Appendicectomy [Unknown]
  - Haemangioma of liver [Unknown]
  - Dyspnoea [Unknown]
  - Carotid endarterectomy [Unknown]
  - Caecectomy [Unknown]
  - Abdominal adhesions [Unknown]
  - Splenectomy [Unknown]
  - Pancreatectomy [Unknown]
  - Coronary artery bypass [Unknown]
  - Adenoma benign [Unknown]
  - Death [Fatal]
  - Adenocarcinoma pancreas [Unknown]
  - Cardiac failure congestive [Unknown]
  - Constipation [Unknown]

NARRATIVE: CASE EVENT DATE: 200811
